FAERS Safety Report 5385007-2 (Version None)
Quarter: 2007Q3

REPORT INFORMATION
  Report Type: 
  Country: None (occurrence: None)
  Receive Date: 20070712
  Receipt Date: 20070703
  Transmission Date: 20080115
  Serious: Yes (Hospitalization)
  Sender: FDA-Public Use
  Company Number: PHBS2007JP07256

PATIENT
  Age: 32 Year
  Sex: Female

DRUGS (10)
  1. SIMULECT [Suspect]
     Indication: RENAL AND PANCREAS TRANSPLANT
     Dosage: 40 MG/D
     Route: 042
     Dates: start: 20060705, end: 20060705
  2. SIMULECT [Suspect]
     Dosage: 40 MG/D
     Route: 042
     Dates: start: 20060709, end: 20060709
  3. PROGRAF [Suspect]
     Indication: RENAL AND PANCREAS TRANSPLANT
     Route: 048
  4. CYCLOPHOSPHAMIDE [Suspect]
     Indication: RENAL AND PANCREAS TRANSPLANT
     Route: 065
  5. CELLCEPT [Suspect]
     Indication: RENAL AND PANCREAS TRANSPLANT
     Route: 048
  6. PREDNISOLONE [Suspect]
     Indication: RENAL AND PANCREAS TRANSPLANT
     Route: 065
  7. ANTICOAGULANTS [Concomitant]
  8. ANTIBIOTICS [Concomitant]
  9. ANTIFUNGALS [Concomitant]
  10. ANTIVIRALS NOS [Concomitant]

REACTIONS (2)
  - BONE MARROW FAILURE [None]
  - RENAL IMPAIRMENT [None]
